FAERS Safety Report 17267512 (Version 1)
Quarter: 2020Q1

REPORT INFORMATION
  Report Type: Report from Study
  Country: US (occurrence: US)
  Receive Date: 20200114
  Receipt Date: 20200114
  Transmission Date: 20200409
  Serious: Yes (Hospitalization, Other)
  Sender: FDA-Public Use
  Company Number: US-BIOVITRUM-2019US3168

PATIENT
  Age: 45 Year
  Sex: Male

DRUGS (2)
  1. KINERET [Suspect]
     Active Substance: ANAKINRA
     Dates: start: 20191226
  2. KINERET [Suspect]
     Active Substance: ANAKINRA
     Indication: RHEUMATOID ARTHRITIS
     Route: 058
     Dates: start: 20190515

REACTIONS (9)
  - Influenza [Unknown]
  - Hallucination [Unknown]
  - Ear infection [Unknown]
  - Arthralgia [Unknown]
  - Haemorrhage [Unknown]
  - Feeling abnormal [Unknown]
  - Cough [Unknown]
  - Depression [Unknown]
  - Pneumonia [Unknown]

NARRATIVE: CASE EVENT DATE: 201912
